FAERS Safety Report 15404324 (Version 7)
Quarter: 2024Q2

REPORT INFORMATION
  Report Type: Spontaneous
  Country: FR (occurrence: FR)
  Receive Date: 20180919
  Receipt Date: 20240509
  Transmission Date: 20240716
  Serious: Yes (Hospitalization, Other)
  Sender: FDA-Public Use
  Company Number: FR-GKKIN-20180426-PI412333-2

PATIENT
  Age: 45 Year
  Sex: Female

DRUGS (12)
  1. BENDAMUSTINE HYDROCHLORIDE [Suspect]
     Active Substance: BENDAMUSTINE HYDROCHLORIDE
     Indication: Non-Hodgkin^s lymphoma stage IV
     Dosage: 200 MILLIGRAM/SQ. METER, (AT D-7 AND D-6 (BEAM CONDITIONING REGIMEN)
     Route: 065
  2. BENDAMUSTINE HYDROCHLORIDE [Suspect]
     Active Substance: BENDAMUSTINE HYDROCHLORIDE
     Indication: Bone marrow conditioning regimen
     Dosage: 90 MILLIGRAM/SQ. METER (SIX COURSES OF R- BENDAMUSTINE D1/D28)
     Route: 065
  3. BENDAMUSTINE HYDROCHLORIDE [Suspect]
     Active Substance: BENDAMUSTINE HYDROCHLORIDE
     Indication: Non-Hodgkin^s lymphoma stage III
  4. MELPHALAN [Suspect]
     Active Substance: MELPHALAN
     Indication: Non-Hodgkin^s lymphoma stage IV
     Dosage: 140 MILLIGRAM/SQ. METER (AT D-2 (BEAM CONDITIONING REGIMEN)
     Route: 065
  5. MELPHALAN [Suspect]
     Active Substance: MELPHALAN
     Indication: Bone marrow conditioning regimen
  6. ETOPOSIDE [Suspect]
     Active Substance: ETOPOSIDE
     Indication: Non-Hodgkin^s lymphoma stage IV
     Dosage: 200 MILLIGRAM/SQ. METER, BID (200 MG/M2, 12 HOUR (FROM D-6 TO D-3 (BEAM CONDITIONING REGIMEN)
     Route: 065
  7. ETOPOSIDE [Suspect]
     Active Substance: ETOPOSIDE
     Indication: Bone marrow conditioning regimen
  8. CYTARABINE [Suspect]
     Active Substance: CYTARABINE
     Indication: Non-Hodgkin^s lymphoma stage IV
     Dosage: 1 GRAM PER SQUARE METRE, BID, (12 H J-6 TO D-3 1 G/M2)
     Route: 065
  9. CYTARABINE [Suspect]
     Active Substance: CYTARABINE
     Indication: Bone marrow conditioning regimen
     Dosage: UNK (12 HOUR (FROM D-6 TO D-3 (BEAM CONDITIONING REGIMEN))
     Route: 065
  10. RITUXIMAB [Concomitant]
     Active Substance: RITUXIMAB
     Indication: Non-Hodgkin^s lymphoma stage IV
     Dosage: 375 MILLIGRAM/SQ. METER (SIX COURSES OF R- BENDAMUSTINE D1/D28)
     Route: 065
  11. GRANULOCYTE COLONY-STIMULATING FACTOR NOS [Concomitant]
     Active Substance: GRANULOCYTE COLONY-STIMULATING FACTOR NOS
     Indication: Premedication
     Dosage: UNK
     Route: 065
  12. MOZOBIL [Concomitant]
     Active Substance: PLERIXAFOR
     Indication: Premedication
     Dosage: UNK
     Route: 065

REACTIONS (10)
  - Congenital aplasia [Recovered/Resolved]
  - Toxicity to various agents [Recovered/Resolved]
  - Ascites [Recovered/Resolved]
  - Generalised oedema [Recovered/Resolved]
  - Pericardial effusion [Recovered/Resolved]
  - Renal failure [Not Recovered/Not Resolved]
  - Venoocclusive liver disease [Unknown]
  - Thrombotic microangiopathy [Unknown]
  - Acute kidney injury [Recovered/Resolved]
  - Product use in unapproved indication [Unknown]
